FAERS Safety Report 18877068 (Version 2)
Quarter: 2021Q2

REPORT INFORMATION
  Report Type: Spontaneous
  Country: US (occurrence: US)
  Receive Date: 20210211
  Receipt Date: 20210401
  Transmission Date: 20210717
  Serious: Yes (Hospitalization)
  Sender: FDA-Public Use
  Company Number: US-SA-2021SA043460

PATIENT
  Age: 58 Year
  Sex: Female

DRUGS (1)
  1. DUPIXENT [Suspect]
     Active Substance: DUPILUMAB
     Indication: DERMATITIS ATOPIC
     Dosage: 300 MG, QOW
     Route: 058
     Dates: start: 20201209

REACTIONS (4)
  - Erythema [Unknown]
  - Burning sensation [Unknown]
  - Erythromelalgia [Unknown]
  - Spinal operation [Unknown]

NARRATIVE: CASE EVENT DATE: 20210204
